FAERS Safety Report 15588351 (Version 1)
Quarter: 2018Q4

REPORT INFORMATION
  Report Type: Spontaneous
  Country: GB (occurrence: GB)
  Receive Date: 20181105
  Receipt Date: 20181105
  Transmission Date: 20190205
  Serious: Yes (Disabling, Other)
  Sender: FDA-Public Use
  Company Number: GB-GILEAD-2018-0371792

PATIENT
  Age: 65 Year
  Sex: Female
  Weight: 57.15 kg

DRUGS (5)
  1. VALERIANA [Concomitant]
     Active Substance: VALERIAN
  2. SILYBUM MARIANUM [Concomitant]
     Active Substance: DIETARY SUPPLEMENT\HERBALS\MILK THISTLE
  3. HARVONI [Suspect]
     Active Substance: LEDIPASVIR\SOFOSBUVIR
     Indication: HEPATITIS C
     Route: 048
     Dates: start: 20181004, end: 20181008
  4. WITHANIA SOMNIFERA [Concomitant]
     Active Substance: HERBALS
  5. VITAMINS NOS [Concomitant]
     Active Substance: VITAMINS

REACTIONS (23)
  - Diplopia [Recovered/Resolved]
  - Agitation [Recovered/Resolved]
  - Head discomfort [Recovered/Resolved]
  - Depression [Recovered/Resolved]
  - Vision blurred [Recovered/Resolved]
  - Gait disturbance [Recovering/Resolving]
  - Dehydration [Recovered/Resolved]
  - Eye haemorrhage [Recovering/Resolving]
  - Insomnia [Recovered/Resolved]
  - Deafness [Recovering/Resolving]
  - Ear discomfort [Recovering/Resolving]
  - Ocular discomfort [Recovered/Resolved]
  - Paraesthesia [Recovering/Resolving]
  - Neck pain [Recovered/Resolved]
  - Dissociation [Recovered/Resolved]
  - Hypomania [Recovered/Resolved]
  - Toothache [Recovered/Resolved]
  - Chest discomfort [Recovering/Resolving]
  - Anxiety [Recovered/Resolved]
  - Tremor [Recovering/Resolving]
  - Heart rate increased [Recovering/Resolving]
  - Blood pressure increased [Recovering/Resolving]
  - Headache [Recovered/Resolved]

NARRATIVE: CASE EVENT DATE: 20181004
